FAERS Safety Report 4952051-6 (Version None)
Quarter: 2006Q1

REPORT INFORMATION
  Report Type: 
  Country: None (occurrence: None)
  Receive Date: 20060320
  Receipt Date: 20060310
  Transmission Date: 20060701
  Serious: Yes (Death, Hospitalization)
  Sender: FDA-Public Use
  Company Number: 221511

PATIENT
  Age: 73 Year
  Sex: Male
  Weight: 59 kg

DRUGS (4)
  1. MABTHERA (RITUXIMAB) CONC FOR SOLUTION FOR INFUSION [Suspect]
     Indication: B-CELL LYMPHOMA
     Dosage: 100 MG, INTRAVENOUS
     Route: 042
     Dates: start: 20051127, end: 20060303
  2. CYCLOPHOSPHAMIDE [Suspect]
     Indication: B-CELL LYMPHOMA
     Dosage: 320 MG, INTRAVENOUS
     Route: 042
     Dates: start: 20051128
  3. MITOXANTRONE [Suspect]
     Indication: B-CELL LYMPHOMA
     Dosage: 9.8 MG, INTRAVENOUS
     Route: 042
     Dates: start: 20051128
  4. FLUDARABINE [Suspect]
     Indication: B-CELL LYMPHOMA
     Dosage: 41 MG, INTRAVENOUS
     Route: 042
     Dates: start: 20051128, end: 20051231

REACTIONS (11)
  - ACUTE RESPIRATORY DISTRESS SYNDROME [None]
  - ANOREXIA [None]
  - BLOOD CULTURE POSITIVE [None]
  - BLOOD PRESSURE DECREASED [None]
  - FUNGAL INFECTION [None]
  - NOSOCOMIAL INFECTION [None]
  - PLEURAL EFFUSION [None]
  - PNEUMONIA BACTERIAL [None]
  - PSEUDOMONAS INFECTION [None]
  - RESPIRATORY FAILURE [None]
  - SPUTUM CULTURE POSITIVE [None]
